FAERS Safety Report 10039320 (Version 1)
Quarter: 2014Q1

REPORT INFORMATION
  Report Type: Spontaneous
  Country: US (occurrence: US)
  Receive Date: 20140326
  Receipt Date: 20140326
  Transmission Date: 20141002
  Serious: No
  Sender: FDA-Public Use
  Company Number: US-PFIZER INC-2014083231

PATIENT
  Sex: Male

DRUGS (2)
  1. ADVIL PM [Suspect]
     Dosage: UNK
  2. ADVIL PM [Suspect]
     Dosage: 600MG (3 TABLETS OF 200MG), TOGETHER
     Dates: start: 20140320

REACTIONS (3)
  - Overdose [Unknown]
  - Somnolence [Unknown]
  - Hypoaesthesia [Unknown]
